FAERS Safety Report 6145823-6 (Version None)
Quarter: 2009Q2

REPORT INFORMATION
  Report Type: 
  Country: None (occurrence: None)
  Receive Date: 20090403
  Receipt Date: 20090320
  Transmission Date: 20091009
  Serious: Yes (Life-Threatening)
  Sender: FDA-Public Use
  Company Number: THQ2009A01141

PATIENT
  Age: 59 Year
  Sex: Female

DRUGS (2)
  1. LANSOPRAZOLE [Suspect]
     Indication: DYSPEPSIA
     Dosage: PER ORAL
     Route: 048
     Dates: start: 20081001, end: 20081201
  2. HYDROXYCHLOROQUINE SULFATE [Concomitant]

REACTIONS (3)
  - DEHYDRATION [None]
  - HYPOPROTEINAEMIA [None]
  - TOXIC EPIDERMAL NECROLYSIS [None]
